FAERS Safety Report 4486876-0 (Version None)
Quarter: 2004Q4

REPORT INFORMATION
  Report Type: 
  Country: None (occurrence: None)
  Receive Date: 20041022
  Receipt Date: 20041011
  Transmission Date: 20050328
  Serious: Yes (Other)
  Sender: FDA-Public Use
  Company Number: 200419099BWH

PATIENT
  Age: 65 Year
  Sex: Male

DRUGS (2)
  1. LEVITRA [Suspect]
     Indication: ERECTILE DYSFUNCTION
     Dosage: ORAL
     Route: 048
     Dates: start: 20030701, end: 20040610
  2. LIPITOR [Concomitant]

REACTIONS (3)
  - BACK PAIN [None]
  - MYOSITIS [None]
  - SCIATICA [None]
